FAERS Safety Report 16615952 (Version 5)
Quarter: 2020Q1

REPORT INFORMATION
  Report Type: Report from Study
  Country: JP (occurrence: JP)
  Receive Date: 20190723
  Receipt Date: 20200225
  Transmission Date: 20200409
  Serious: Yes (Death, Life-Threatening, Other)
  Sender: FDA-Public Use
  Company Number: JP-ASTELLAS-2019JP014042

PATIENT
  Age: 8 Decade
  Sex: Male
  Weight: 55 kg

DRUGS (11)
  1. PREDNISOLONE. [Concomitant]
     Active Substance: PREDNISOLONE
     Indication: ORGANISING PNEUMONIA
     Dosage: 20 MG/DAY, UNKNOWN FREQ.
     Route: 048
  2. ASP2215 [Suspect]
     Active Substance: GILTERITINIB
     Indication: ACUTE MYELOID LEUKAEMIA RECURRENT
     Route: 048
     Dates: start: 20190704, end: 20190712
  3. CEFEPIME HYDROCHLORIDE. [Concomitant]
     Active Substance: CEFEPIME HYDROCHLORIDE
     Indication: FEBRILE NEUTROPENIA
     Dosage: 4 G/DAY, UNKNOWN FREQ.
     Route: 065
  4. DAIPHEN [Concomitant]
     Active Substance: SULFAMETHOXAZOLE\TRIMETHOPRIM
     Indication: ORGANISING PNEUMONIA
     Dosage: 1 DF/DAY, UNKNOWN FREQ.
     Route: 048
  5. MIYA-BM [Concomitant]
     Active Substance: CLOSTRIDIUM BUTYRICUM SPORES STRAIN M-55
     Indication: ENTEROCOLITIS
     Dosage: 6 DF/DAY, UNKNOWN FREQ.
     Route: 048
  6. ZOSYN [Concomitant]
     Active Substance: PIPERACILLIN SODIUM\TAZOBACTAM SODIUM
     Indication: FEBRILE NEUTROPENIA
     Dosage: 9 G/DAY, UNKNOWN FREQ.
     Route: 065
     Dates: start: 20190709, end: 20190713
  7. VFEND [Concomitant]
     Active Substance: VORICONAZOLE
     Indication: PULMONARY MYCOSIS
     Dosage: 300 MG/DAY, UNKNOWN FREQ.
     Route: 048
  8. RABEPRAZOLE [Concomitant]
     Active Substance: RABEPRAZOLE
     Indication: GASTROOESOPHAGEAL REFLUX DISEASE
     Dosage: 10 MG/DAY, UNKNOWN FREQ.
     Route: 048
  9. AMBISOME [Suspect]
     Active Substance: AMPHOTERICIN B
     Indication: PULMONARY MYCOSIS
     Dosage: 250 MG/DAY, UNKNOWN FREQ.
     Route: 065
     Dates: start: 20190705, end: 20190708
  10. MAGMITT [Concomitant]
     Active Substance: MAGNESIUM OXIDE
     Indication: CONSTIPATION
     Dosage: 2 G/DAY, UNKNOWN FREQ.
     Route: 048
  11. FUNGUARD [Concomitant]
     Active Substance: MICAFUNGIN SODIUM
     Indication: PULMONARY MYCOSIS
     Dosage: 150 MG/DAY, UNKNOWN FREQ.
     Route: 065
     Dates: start: 20190708, end: 20190714

REACTIONS (8)
  - Necrotising colitis [Fatal]
  - Acute respiratory distress syndrome [Fatal]
  - Liver disorder [Recovering/Resolving]
  - Cardiac failure [Fatal]
  - Bone marrow failure [Fatal]
  - Infection [Unknown]
  - Ileus [Fatal]
  - Renal disorder [Fatal]

NARRATIVE: CASE EVENT DATE: 20190708
